FAERS Safety Report 23760803 (Version 1)
Quarter: 2024Q2

REPORT INFORMATION
  Report Type: Spontaneous
  Country: GR (occurrence: None)
  Receive Date: 20240419
  Receipt Date: 20240419
  Transmission Date: 20240715
  Serious: Yes (Other)
  Sender: FDA-Public Use
  Company Number: GR-ROCHE-3546344

PATIENT
  Age: 31 Year
  Weight: 75 kg

DRUGS (2)
  1. EMICIZUMAB [Suspect]
     Active Substance: EMICIZUMAB
     Indication: Factor VIII deficiency
     Route: 048
     Dates: start: 202002
  2. COAGULATION FACTOR VIIA RECOMBINANT HUMAN [Concomitant]
     Active Substance: COAGULATION FACTOR VIIA RECOMBINANT HUMAN
     Dosage: 100 MICROGRAM/KG 30 MIN PRE SX AND 90 MICROGRAM/KG AT 3-4 HOURS AND 5-HOUR
     Route: 040

REACTIONS (1)
  - Hip arthroplasty [Unknown]
